FAERS Safety Report 7418448-X (Version None)
Quarter: 2011Q2

REPORT INFORMATION
  Report Type: 
  Country: None (occurrence: None)
  Receive Date: 20110407
  Receipt Date: 20110323
  Transmission Date: 20111010
  Serious: Yes (Other)
  Sender: FDA-Public Use
  Company Number: 029893

PATIENT
  Sex: Female

DRUGS (2)
  1. EPILIM [Concomitant]
  2. KEPPRA [Suspect]
     Dosage: (250 MG BID) ; (1 G BID)  ; (500 MG BID) ; (DOSE REDUCED)

REACTIONS (4)
  - DIPLOPIA [None]
  - FALL [None]
  - SEDATION [None]
  - FEELING ABNORMAL [None]
